FAERS Safety Report 16320041 (Version 1)
Quarter: 2019Q2

REPORT INFORMATION
  Report Type: Spontaneous
  Country: US (occurrence: US)
  Receive Date: 20190515
  Receipt Date: 20190515
  Transmission Date: 20190711
  Serious: Yes (Hospitalization)
  Sender: FDA-Public Use
  Company Number: None

PATIENT
  Age: 65 Year
  Sex: Female

DRUGS (9)
  1. NIFEDIPINE. [Concomitant]
     Active Substance: NIFEDIPINE
  2. PROCARDIA [Concomitant]
     Active Substance: NIFEDIPINE
  3. LEVOTHYROXINE. [Concomitant]
     Active Substance: LEVOTHYROXINE
  4. OMEPRAZOLE. [Concomitant]
     Active Substance: OMEPRAZOLE
  5. CEPHALEXIN. [Concomitant]
     Active Substance: CEPHALEXIN
  6. SILDENAFIL. [Suspect]
     Active Substance: SILDENAFIL
     Indication: PULMONARY ARTERIAL HYPERTENSION
     Route: 048
     Dates: start: 20161106
  7. VITAMIN D [Concomitant]
     Active Substance: VITAMIN D NOS
  8. MULTIVITAMIN [Concomitant]
     Active Substance: VITAMINS
  9. MEGESTROL [Concomitant]
     Active Substance: MEGESTROL

REACTIONS (1)
  - Renal failure [None]

NARRATIVE: CASE EVENT DATE: 20190510
